FAERS Safety Report 7906406-8 (Version None)
Quarter: 2011Q4

REPORT INFORMATION
  Report Type: 
  Country: None (occurrence: None)
  Receive Date: 20111110
  Receipt Date: 20111107
  Transmission Date: 20120403
  Serious: Yes (Other)
  Sender: FDA-Public Use
  Company Number: DE-PFIZER INC-2011272691

PATIENT

DRUGS (1)
  1. SUNITINIB MALATE [Suspect]

REACTIONS (1)
  - DUODENAL ULCER [None]
